FAERS Safety Report 23191499 (Version 1)
Quarter: 2023Q4

REPORT INFORMATION
  Report Type: Spontaneous
  Country: US (occurrence: None)
  Receive Date: 20231115
  Receipt Date: 20231115
  Transmission Date: 20240109
  Serious: Yes (Life-Threatening)
  Sender: FDA-Public Use
  Company Number: None

PATIENT
  Age: 65 Year
  Sex: Male
  Weight: 110 kg

DRUGS (1)
  1. FEIBA [Suspect]
     Active Substance: ANTI-INHIBITOR COAGULANT COMPLEX
     Dosage: FREQUENCY : AS NEEDED;?
     Route: 040
     Dates: start: 20230918, end: 20230918

REACTIONS (3)
  - Atrial thrombosis [None]
  - Right ventricular failure [None]
  - Pulmonary embolism [None]

NARRATIVE: CASE EVENT DATE: 20230918
